FAERS Safety Report 15789852 (Version 3)
Quarter: 2019Q1

REPORT INFORMATION
  Report Type: Spontaneous
  Country: US (occurrence: US)
  Receive Date: 20190104
  Receipt Date: 20190129
  Transmission Date: 20190417
  Serious: Yes (Hospitalization, Other)
  Sender: FDA-Public Use
  Company Number: US-PFIZER INC-2019004177

PATIENT
  Age: 89 Year
  Sex: Female
  Weight: 78.46 kg

DRUGS (1)
  1. XALKORI [Suspect]
     Active Substance: CRIZOTINIB
     Indication: LUNG CANCER METASTATIC
     Dosage: 250 MG, TWICE DAILY
     Route: 048
     Dates: start: 20181219

REACTIONS (16)
  - Hypotension [Not Recovered/Not Resolved]
  - Tachycardia [Unknown]
  - Back pain [Unknown]
  - Peripheral swelling [Unknown]
  - Oxygen saturation decreased [Unknown]
  - Musculoskeletal chest pain [Unknown]
  - Urine output decreased [Unknown]
  - Chest pain [Unknown]
  - Mental disorder [Unknown]
  - Constipation [Unknown]
  - Dyspnoea [Recovering/Resolving]
  - Pleural effusion [Unknown]
  - Cough [Recovering/Resolving]
  - Cellulitis [Unknown]
  - Decreased appetite [Not Recovered/Not Resolved]
  - Cardiac stress test abnormal [Unknown]

NARRATIVE: CASE EVENT DATE: 20181226
